FAERS Safety Report 4716667-4 (Version None)
Quarter: 2005Q3

REPORT INFORMATION
  Report Type: 
  Country: None (occurrence: None)
  Receive Date: 20050714
  Receipt Date: 20050701
  Transmission Date: 20060218
  Serious: Yes (Other)
  Sender: FDA-Public Use
  Company Number: 215681

PATIENT
  Age: 16 Year
  Sex: Male

DRUGS (4)
  1. NUTROPIN AQ [Suspect]
     Indication: BODY HEIGHT BELOW NORMAL
     Dosage: 2 MG, QD, SUBCUTANEOUS
     Route: 058
     Dates: start: 20040401
  2. METHOTREXATE [Concomitant]
  3. LACTOBACILLUS (LACTOBACILLUS) [Concomitant]
  4. FLAGYL [Concomitant]

REACTIONS (3)
  - CROHN'S DISEASE [None]
  - DIARRHOEA [None]
  - WEIGHT DECREASED [None]
